FAERS Safety Report 24547679 (Version 2)
Quarter: 2025Q1

REPORT INFORMATION
  Report Type: Report from Study
  Country: JP (occurrence: JP)
  Receive Date: 20241025
  Receipt Date: 20250116
  Transmission Date: 20250409
  Serious: Yes (Other)
  Sender: MERZ
  Company Number: JP-teijin-202402168_XEO_P_1

PATIENT

DRUGS (8)
  1. XEOMIN [Suspect]
     Active Substance: INCOBOTULINUMTOXINA
     Indication: Muscle spasticity
     Dosage: 50 INTERNATIONAL UNIT
     Route: 030
     Dates: start: 20240226, end: 20240226
  2. XEOMIN [Suspect]
     Active Substance: INCOBOTULINUMTOXINA
     Dosage: 50 INTERNATIONAL UNIT
     Route: 030
     Dates: start: 20231211, end: 20231211
  3. XEOMIN [Suspect]
     Active Substance: INCOBOTULINUMTOXINA
     Dosage: 50 INTERNATIONAL UNIT
     Route: 030
     Dates: start: 20240904, end: 20240904
  4. XEOMIN [Suspect]
     Active Substance: INCOBOTULINUMTOXINA
     Dosage: 50 INTERNATIONAL UNIT
     Route: 030
     Dates: start: 20241125, end: 20241125
  5. DONEPEZIL [Concomitant]
     Active Substance: DONEPEZIL
     Indication: Dementia
     Dosage: 5 MILLIGRAM
     Route: 048
  6. SYMMETREL [Concomitant]
     Active Substance: AMANTADINE HYDROCHLORIDE
     Indication: Parkinson^s disease
     Dosage: 50 MILLIGRAM
     Route: 048
  7. CARBIDOPA\LEVODOPA [Concomitant]
     Active Substance: CARBIDOPA\LEVODOPA
     Indication: Parkinson^s disease
     Dosage: 150 MILLIGRAM
     Route: 048
  8. AMLODIPINE [Concomitant]
     Active Substance: AMLODIPINE BESYLATE
     Indication: Hypertension
     Dosage: 2.5 MILLIGRAM
     Route: 048

REACTIONS (10)
  - Cholecystitis [Unknown]
  - Pneumonia aspiration [Recovering/Resolving]
  - Pneumonia aspiration [Recovered/Resolved]
  - Pneumonia aspiration [Recovered/Resolved]
  - Pneumonia aspiration [Recovered/Resolved]
  - Pneumonia aspiration [Recovered/Resolved]
  - Pneumonia aspiration [Recovered/Resolved]
  - Pneumonia aspiration [Recovered/Resolved]
  - Hypoglycaemia [Recovering/Resolving]
  - Cellulitis [Recovered/Resolved]

NARRATIVE: CASE EVENT DATE: 20240307
